FAERS Safety Report 9462679 (Version 1)
Quarter: 2013Q3

REPORT INFORMATION
  Report Type: Other
  Country: FR (occurrence: FR)
  Receive Date: 20130816
  Receipt Date: 20130816
  Transmission Date: 20140515
  Serious: Yes (Other)
  Sender: FDA-Public Use
  Company Number: FR-BRISTOL-MYERS SQUIBB COMPANY-19175140

PATIENT
  Age: 25 Year
  Sex: Male

DRUGS (2)
  1. ARIPIPRAZOLE [Suspect]
     Indication: SCHIZOPHRENIA
     Dates: start: 201110, end: 201111
  2. CLOZAPINE [Suspect]
     Indication: SCHIZOPHRENIA
     Dosage: STOPPED ON JUNE 2011, DOSE INCREASED TO 800MG/DAY AND DECREASED TO 500MG/DAY.
     Dates: start: 201009

REACTIONS (2)
  - Constipation [Recovering/Resolving]
  - Intestinal obstruction [Recovering/Resolving]
